FAERS Safety Report 5275575-3 (Version None)
Quarter: 2007Q1

REPORT INFORMATION
  Report Type: 
  Country: None (occurrence: None)
  Receive Date: 20061213
  Receipt Date: 20060425
  Transmission Date: 20070707
  Serious: No
  Sender: FDA-Public Use
  Company Number: 2006UW07419

PATIENT

DRUGS (2)
  1. SEROQUEL [Suspect]
     Dosage: 50 MG PO
     Route: 048
  2. CELEXA [Concomitant]

REACTIONS (3)
  - CONVULSION [None]
  - MIGRAINE [None]
  - PHOTOPHOBIA [None]
